FAERS Safety Report 5508480-5 (Version None)
Quarter: 2007Q4

REPORT INFORMATION
  Report Type: 
  Country: None (occurrence: None)
  Receive Date: 20071031
  Receipt Date: 20070810
  Transmission Date: 20080405
  Serious: No
  Sender: FDA-Public Use
  Company Number: 200712732BWH

PATIENT
  Age: 86 Year
  Sex: Female
  Weight: 44.9061 kg

DRUGS (5)
  1. NEXAVAR [Suspect]
     Indication: METASTASIS
     Dosage: 400 MG, BID, ORAL
     Route: 048
     Dates: start: 20070725
  2. NEXAVAR [Suspect]
     Indication: RENAL CELL CARCINOMA STAGE UNSPECIFIED
     Dosage: 400 MG, BID, ORAL
     Route: 048
     Dates: start: 20070725
  3. MULTI-VITAMIN [Concomitant]
  4. PRAVACHOL [Concomitant]
  5. HYDROCHLOROTHIAZIDE [Concomitant]

REACTIONS (6)
  - ANOREXIA [None]
  - BLOOD PRESSURE INCREASED [None]
  - NAUSEA [None]
  - RASH PRURITIC [None]
  - VOMITING [None]
  - WEIGHT DECREASED [None]
